FAERS Safety Report 20199769 (Version 1)
Quarter: 2021Q4

REPORT INFORMATION
  Report Type: Spontaneous
  Country: JP (occurrence: JP)
  Receive Date: 20211217
  Receipt Date: 20211217
  Transmission Date: 20220304
  Serious: Yes (Other)
  Sender: FDA-Public Use
  Company Number: JP-OTSUKA-2021_031138

PATIENT

DRUGS (2)
  1. SAMSCA [Suspect]
     Active Substance: TOLVAPTAN
     Indication: Cardiac failure congestive
     Dosage: UNK
     Route: 065
  2. FUROSEMIDE [Suspect]
     Active Substance: FUROSEMIDE
     Indication: Cardiac failure congestive
     Dosage: UNK
     Route: 065

REACTIONS (2)
  - Renal impairment [Unknown]
  - Wrong technique in product usage process [Unknown]
